FAERS Safety Report 16968777 (Version 2)
Quarter: 2019Q4

REPORT INFORMATION
  Report Type: Spontaneous
  Country: JP (occurrence: JP)
  Receive Date: 20191029
  Receipt Date: 20191105
  Transmission Date: 20200122
  Serious: No
  Sender: FDA-Public Use
  Company Number: JP-TEVA-2019-JP-1108263

PATIENT
  Age: 82 Year
  Sex: Male

DRUGS (11)
  1. CARBOCISTEINE [Concomitant]
     Active Substance: CARBOCYSTEINE
  2. TAMSULOSIN HYDROCHLORIDE. [Concomitant]
     Active Substance: TAMSULOSIN HYDROCHLORIDE
  3. ZOLPIDEM TARTRATE. [Concomitant]
     Active Substance: ZOLPIDEM TARTRATE
  4. BENIDIPINE HYDROCHLORIDE [Concomitant]
     Active Substance: BENIDIPINE HYDROCHLORIDE
  5. LANSOPRAZOLE. [Concomitant]
     Active Substance: LANSOPRAZOLE
  6. FRANDOL [Concomitant]
     Active Substance: ISOSORBIDE DINITRATE
     Dosage: TAPE (INCLUDING POULTICE)
  7. DEPAS [Concomitant]
  8. AZILECT [Suspect]
     Active Substance: RASAGILINE MESYLATE
     Indication: PARKINSON^S DISEASE
     Dosage: 1 MILLIGRAM DAILY;
     Route: 048
     Dates: start: 20190829, end: 20190830
  9. NIFEDIPINE. [Concomitant]
     Active Substance: NIFEDIPINE
  10. NICORANDIL [Concomitant]
     Active Substance: NICORANDIL
  11. SENNOSIDE A+B [Concomitant]
     Active Substance: SENNOSIDES A AND B

REACTIONS (1)
  - Hypoaesthesia [Recovered/Resolved]

NARRATIVE: CASE EVENT DATE: 20190829
